FAERS Safety Report 22799661 (Version 2)
Quarter: 2024Q1

REPORT INFORMATION
  Report Type: Spontaneous
  Country: FR (occurrence: FR)
  Receive Date: 20230808
  Receipt Date: 20240104
  Transmission Date: 20240409
  Serious: Yes (Hospitalization)
  Sender: FDA-Public Use
  Company Number: None

PATIENT
  Age: 51 Year
  Sex: Male
  Weight: 74.5 kg

DRUGS (7)
  1. PIPERACILLIN AND TAZOBACTAM [Suspect]
     Active Substance: PIPERACILLIN SODIUM\TAZOBACTAM SODIUM
     Indication: Febrile neutropenia
     Dosage: POWDER FOR SOLUTION FOR INJECTION OR INFUSION?ROUTE: INTRAVENOUS?THERAPY START DATE-12-JUN-2023
     Dates: end: 20230621
  2. PIPERACILLIN AND TAZOBACTAM [Suspect]
     Active Substance: PIPERACILLIN SODIUM\TAZOBACTAM SODIUM
     Indication: Interstitial lung disease
  3. PIPERACILLIN AND TAZOBACTAM [Suspect]
     Active Substance: PIPERACILLIN SODIUM\TAZOBACTAM SODIUM
     Indication: Febrile neutropenia
     Dosage: POWDER FOR SOLUTION FOR INFUSION ?ROUTE: INTRAVENOUS
     Dates: start: 20230526, end: 20230531
  4. PIPERACILLIN AND TAZOBACTAM [Suspect]
     Active Substance: PIPERACILLIN SODIUM\TAZOBACTAM SODIUM
     Indication: Interstitial lung disease
  5. PANTOPRAZOLE [Concomitant]
     Active Substance: PANTOPRAZOLE
     Indication: Gastritis prophylaxis
     Dosage: ROUTE: ORAL
     Dates: start: 20230601, end: 20230626
  6. SYMBICORT TURBUHALER 100/6 micrograms per dose, powder for inhalation [Concomitant]
     Indication: Asthma
     Dosage: ROUTE: INHALATION
  7. SYMBICORT TURBUHALER 100/6 micrograms per dose, powder for inhalation [Concomitant]
     Dosage: ROA-20020000
     Route: 055

REACTIONS (4)
  - Thrombocytopenia [Recovered/Resolved]
  - Agranulocytosis [Recovered/Resolved]
  - Symptom recurrence [Recovered/Resolved]
  - Symptom recurrence [Recovered/Resolved]

NARRATIVE: CASE EVENT DATE: 20230528
